FAERS Safety Report 9690023 (Version 1)
Quarter: 2013Q4

REPORT INFORMATION
  Report Type: Spontaneous
  Country: US (occurrence: US)
  Receive Date: 20131115
  Receipt Date: 20131115
  Transmission Date: 20140711
  Serious: Yes (Hospitalization)
  Sender: FDA-Public Use
  Company Number: US-ACCORD-020298

PATIENT
  Age: 49 Year
  Sex: Male

DRUGS (4)
  1. MYCOPHENOLATE MOFETIL [Suspect]
     Indication: RENAL TRANSPLANT
  2. TACROLIMUS [Suspect]
     Indication: RENAL TRANSPLANT
  3. PREDNISONE [Suspect]
     Indication: RENAL TRANSPLANT
     Dosage: DOSE WAS?INCREASED TO 60 MG/D
  4. LISINOPRIL [Concomitant]

REACTIONS (5)
  - Focal segmental glomerulosclerosis [Unknown]
  - Transplant failure [Recovering/Resolving]
  - Pneumonia [Unknown]
  - Herpes zoster [Unknown]
  - Sepsis [Unknown]
